FAERS Safety Report 16611774 (Version 2)
Quarter: 2019Q3

REPORT INFORMATION
  Report Type: Report from Study
  Country: BD (occurrence: BD)
  Receive Date: 20190722
  Receipt Date: 20190725
  Transmission Date: 20191004
  Serious: Yes (Death, Hospitalization)
  Sender: FDA-Public Use
  Company Number: PHHY2019BD169434

PATIENT
  Age: 14 Year
  Sex: Male
  Weight: 80 kg

DRUGS (2)
  1. VOTRIENT [Suspect]
     Active Substance: PAZOPANIB HYDROCHLORIDE
     Indication: SPINAL CORD NEOPLASM
     Dosage: 600 MG, (200 MG X 3 DAILY)
     Route: 048
     Dates: start: 20190514, end: 20190616
  2. VOTRIENT [Suspect]
     Active Substance: PAZOPANIB HYDROCHLORIDE
     Dosage: 600 MG, UNK
     Route: 048
     Dates: start: 201906

REACTIONS (4)
  - Respiratory failure [Fatal]
  - Coma [Fatal]
  - Product use in unapproved indication [Unknown]
  - Dyspnoea [Fatal]

NARRATIVE: CASE EVENT DATE: 20190629
